FAERS Safety Report 9529251 (Version 1)
Quarter: 2013Q1

REPORT INFORMATION
  Report Type: Spontaneous
  Country: US (occurrence: None)
  Receive Date: 20130320
  Receipt Date: 20130320
  Transmission Date: 20140127
  Serious: Yes (Death, Other)
  Sender: FDA-Public Use
  Company Number: 075233

PATIENT
  Age: 47 Year
  Sex: Female

DRUGS (5)
  1. ALPRAZOLAM [Suspect]
     Dosage: (ORAL)
     Route: 048
  2. TRAMADOL [Suspect]
     Dosage: (ORAL)
     Route: 048
  3. CYCLOBENZAPRINE [Suspect]
     Dosage: (ORAL)
     Route: 048
  4. CITALOPRAM [Suspect]
     Dosage: (ORAL)
     Route: 048
  5. PROMETHAZINE [Suspect]

REACTIONS (1)
  - Completed suicide [None]
